FAERS Safety Report 9547923 (Version 1)
Quarter: 2013Q3

REPORT INFORMATION
  Report Type: Spontaneous
  Country: US (occurrence: US)
  Receive Date: 20130924
  Receipt Date: 20130924
  Transmission Date: 20140515
  Serious: No
  Sender: FDA-Public Use
  Company Number: US-PURDUE-USA-2012-0084497

PATIENT
  Age: 42 Year
  Sex: Female

DRUGS (4)
  1. MORPHINE SULFATE (SIMILAR TO NDA 19-516) [Suspect]
     Indication: PRODUCT USED FOR UNKNOWN INDICATION
     Dosage: UNK
  2. ASACOL [Concomitant]
     Indication: CROHN^S DISEASE
     Dosage: UNK
  3. WELLBUTRIN [Concomitant]
     Indication: STRESS
     Dosage: UNK
  4. SANDOSTATIN [Concomitant]
     Indication: CARCINOID SYNDROME
     Dosage: UNK

REACTIONS (3)
  - Pruritus [Unknown]
  - Rash [Unknown]
  - Dyspnoea [Unknown]
